FAERS Safety Report 6729579-1 (Version None)
Quarter: 2010Q2

REPORT INFORMATION
  Report Type: 
  Country: None (occurrence: None)
  Receive Date: 20100518
  Receipt Date: 20100510
  Transmission Date: 20101027
  Serious: No
  Sender: FDA-Public Use
  Company Number: 2009BI038649

PATIENT
  Age: 32 Year
  Sex: Female

DRUGS (1)
  1. TYSABRI [Suspect]
     Indication: MULTIPLE SCLEROSIS
     Route: 042
     Dates: start: 20080320, end: 20100312

REACTIONS (6)
  - CATHETER SITE OEDEMA [None]
  - DEVICE FAILURE [None]
  - EXTRAVASATION [None]
  - INFUSION SITE PRURITUS [None]
  - INFUSION SITE SWELLING [None]
  - POOR VENOUS ACCESS [None]
